FAERS Safety Report 23181601 (Version 1)
Quarter: 2023Q4

REPORT INFORMATION
  Report Type: Spontaneous
  Country: US (occurrence: None)
  Receive Date: 20231113
  Receipt Date: 20231113
  Transmission Date: 20240110
  Serious: Yes (Other)
  Sender: FDA-Public Use
  Company Number: None

PATIENT
  Age: 36 Year
  Sex: Male
  Weight: 90 kg

DRUGS (1)
  1. ODEFSEY [Suspect]
     Active Substance: EMTRICITABINE\RILPIVIRINE HYDROCHLORIDE\TENOFOVIR ALAFENAMIDE FUMARATE
     Indication: HIV infection
     Dosage: OTHER QUANTITY : 30 TABLET(S);?FREQUENCY : DAILY;?
     Route: 048
     Dates: start: 20230830, end: 20230930

REACTIONS (9)
  - Blood testosterone decreased [None]
  - Fatigue [None]
  - Dyspnoea [None]
  - Weight increased [None]
  - Feeling abnormal [None]
  - Exercise tolerance decreased [None]
  - Disturbance in attention [None]
  - Headache [None]
  - Asthenia [None]

NARRATIVE: CASE EVENT DATE: 20231005
